FAERS Safety Report 5633280-5 (Version None)
Quarter: 2008Q1

REPORT INFORMATION
  Report Type: 
  Country: None (occurrence: None)
  Receive Date: 20080221
  Receipt Date: 20080215
  Transmission Date: 20080703
  Serious: Yes (Death, Hospitalization)
  Sender: FDA-Public Use
  Company Number: MY-MERCK-0802MYS00006

PATIENT
  Age: 77 Year
  Sex: Female

DRUGS (2)
  1. JANUVIA [Suspect]
     Indication: HYPERGLYCAEMIA
     Route: 048
  2. METFORMIN [Concomitant]
     Route: 065

REACTIONS (1)
  - DIABETIC KETOACIDOSIS [None]
